FAERS Safety Report 8147629 (Version 3)
Quarter: 2013Q3

REPORT INFORMATION
  Report Type: Spontaneous
  Country: US (occurrence: US)
  Receive Date: 20110922
  Receipt Date: 20130730
  Transmission Date: 20140515
  Serious: Yes (Other)
  Sender: FDA-Public Use
  Company Number: US-ASTRAZENECA-2011SE12577

PATIENT
  Age: 17551 Day
  Sex: Female

DRUGS (14)
  1. SEROQUEL [Suspect]
     Route: 048
     Dates: start: 20020801
  2. SEROQUEL [Suspect]
     Route: 048
     Dates: start: 20100828
  3. HYDROCODONE APAP [Concomitant]
     Dosage: 7.5 MG/650 MG TABS TK 1 T BID PRN
     Route: 048
     Dates: start: 20020311
  4. HYDROCODONE APAP [Concomitant]
     Dosage: 10MG/650 MG TABS TK 1 T PO BID
     Route: 048
     Dates: start: 20020401
  5. EFFEXOR XR [Concomitant]
     Route: 048
     Dates: start: 20020401
  6. ALPRAZOLAM [Concomitant]
     Dosage: 0.5 MG TO 1 MG TK 1-3 TS PRN
     Route: 048
     Dates: start: 20020121
  7. BUTALBITAL/APAP/CAFFEINE [Concomitant]
     Dosage: TK 1 T BID PRN
     Route: 048
     Dates: start: 20020121
  8. CELEXA [Concomitant]
     Route: 048
     Dates: start: 20020801
  9. BACLOFEN [Concomitant]
     Route: 048
     Dates: start: 20020801
  10. HYDROMORPHONE HCL [Concomitant]
     Route: 048
  11. MORPHINE SULPHATE [Concomitant]
     Route: 048
  12. TIZANIDINE HCL [Concomitant]
     Route: 048
  13. ATENOLOL [Concomitant]
     Route: 048
  14. SOMA [Concomitant]
     Route: 048

REACTIONS (3)
  - Diabetic coma [Unknown]
  - Pancreatitis [Unknown]
  - Type 2 diabetes mellitus [Unknown]
